FAERS Safety Report 8244941-6 (Version None)
Quarter: 2012Q1

REPORT INFORMATION
  Report Type: 
  Country: None (occurrence: None)
  Receive Date: 20120329
  Receipt Date: 20110927
  Transmission Date: 20120608
  Serious: No
  Sender: FDA-Public Use
  Company Number: US-MYLANLABS-2011S1020413

PATIENT
  Sex: Male

DRUGS (3)
  1. FENTANYL-100 [Suspect]
     Dosage: Q48H
     Route: 062
  2. MARIJUANA [Concomitant]
  3. FENTANYL-100 [Suspect]
     Indication: PAIN
     Dosage: Q48H
     Route: 062
     Dates: start: 20110615

REACTIONS (5)
  - INSOMNIA [None]
  - CONSTIPATION [None]
  - ANXIETY [None]
  - PARANOIA [None]
  - CRYING [None]
